FAERS Safety Report 4567956-8 (Version None)
Quarter: 2005Q1

REPORT INFORMATION
  Report Type: 
  Country: None (occurrence: None)
  Receive Date: 20050202
  Receipt Date: 20050124
  Transmission Date: 20050727
  Serious: Yes (Hospitalization, Other)
  Sender: FDA-Public Use
  Company Number: US-ABBOTT-05P-163-0287740-00

PATIENT
  Sex: Female
  Weight: 59.02 kg

DRUGS (17)
  1. HUMIRA [Suspect]
     Indication: RHEUMATOID ARTHRITIS
     Route: 058
     Dates: start: 20041101
  2. HUMIRA [Suspect]
     Route: 058
     Dates: start: 20040601, end: 20041101
  3. GLIMEPIRIDE [Concomitant]
     Indication: DIABETES MELLITUS
     Route: 048
  4. GLUCOPHAGE [Concomitant]
     Indication: DIABETES MELLITUS
     Route: 048
  5. NATEGLINIDE [Concomitant]
     Indication: DIABETES MELLITUS
     Route: 048
  6. DARVOCET [Concomitant]
     Indication: ARTHRALGIA
  7. FUROSEMIDE [Concomitant]
     Indication: CARDIAC FAILURE CONGESTIVE
     Route: 048
  8. POTASSIUM CHLORIDE [Concomitant]
     Indication: SUBSTITUTION THERAPY
     Route: 048
  9. LISINOPRIL [Concomitant]
     Indication: CARDIAC DISORDER
     Route: 048
  10. METOPROLOL TARTRATE [Concomitant]
     Indication: CARDIAC DISORDER
     Route: 048
  11. NICOTINIC ACID [Concomitant]
     Indication: BLOOD CHOLESTEROL INCREASED
     Route: 048
  12. GARLIC [Concomitant]
     Indication: BLOOD CHOLESTEROL INCREASED
     Route: 048
  13. FAMOTIDINE [Concomitant]
     Indication: GASTROOESOPHAGEAL REFLUX DISEASE
     Route: 048
  14. PARACETAMOL [Concomitant]
     Indication: ARTHRALGIA
     Route: 048
  15. DILTIAZEM [Concomitant]
     Indication: DIURETIC THERAPY
     Route: 048
  16. DIAZEPAM [Concomitant]
     Indication: INSOMNIA
  17. HYDROCHLOROTHIAZIDE [Concomitant]
     Indication: CARDIAC DISORDER
     Route: 048

REACTIONS (3)
  - ABDOMINAL MASS [None]
  - CYSTITIS [None]
  - DYSURIA [None]
